FAERS Safety Report 8459308-5 (Version None)
Quarter: 2012Q2

REPORT INFORMATION
  Report Type: 
  Country: None (occurrence: None)
  Receive Date: 20120622
  Receipt Date: 20120622
  Transmission Date: 20120825
  Serious: Yes (Other)
  Sender: FDA-Public Use
  Company Number: BR-PFIZER INC-2012143754

PATIENT
  Age: 61 Year
  Sex: Female

DRUGS (6)
  1. ENALAPRIL [Concomitant]
     Indication: BLOOD PRESSURE
     Dosage: ONE TABLET, TWICE DAILY
  2. TOLTERODINE TARTRATE [Suspect]
     Indication: URINARY INCONTINENCE
     Dosage: 4 MG (ONE CAPSULE), 1X/DAY
     Route: 048
     Dates: start: 20061008
  3. SERTRALINE HYDROCHLORIDE [Suspect]
     Indication: DEPRESSION
  4. DARIFENACIN [Concomitant]
     Indication: URINARY INCONTINENCE
     Dosage: 15 MG, 1X/DAY
  5. ZOLOFT [Concomitant]
     Dosage: 50 MG, 1X/DAY
     Dates: start: 20090101
  6. PRESSAT [Concomitant]
     Indication: BLOOD PRESSURE INCREASED
     Dosage: 5 MG, 2X/DAY

REACTIONS (2)
  - DEPRESSION [None]
  - DRUG INEFFECTIVE [None]
